FAERS Safety Report 4660857-6 (Version None)
Quarter: 2005Q2

REPORT INFORMATION
  Report Type: 
  Country: None (occurrence: None)
  Receive Date: 20050426
  Receipt Date: 20050111
  Transmission Date: 20051028
  Serious: Yes (Other)
  Sender: FDA-Public Use
  Company Number: 26040

PATIENT
  Age: 4 Year
  Sex: Female

DRUGS (1)
  1. ALDARA [Suspect]
     Indication: SKIN PAPILLOMA
     Dosage: (0.1 SACHET,1 IN 1 DAY(S)),TOPICAL
     Route: 061
     Dates: start: 20040801, end: 20040801

REACTIONS (2)
  - ECZEMA [None]
  - NAIL PSORIASIS [None]
